FAERS Safety Report 17887631 (Version 3)
Quarter: 2020Q3

REPORT INFORMATION
  Report Type: Spontaneous
  Country: US (occurrence: US)
  Receive Date: 20200611
  Receipt Date: 20200703
  Transmission Date: 20201103
  Serious: Yes (Other)
  Sender: FDA-Public Use
  Company Number: US-GILEAD-2020-0470900

PATIENT
  Age: 41 Year
  Sex: Female
  Weight: 128 kg

DRUGS (22)
  1. REMDESIVIR. [Suspect]
     Active Substance: REMDESIVIR
     Indication: PNEUMONIA VIRAL
     Dosage: 100 MG, QD
     Route: 065
     Dates: start: 20200510, end: 20200511
  2. PLASMA [Concomitant]
     Active Substance: HUMAN PLASMA
     Indication: COVID-19
     Dosage: UNK
     Dates: start: 20200506, end: 20200507
  3. ALBUTEROL [SALBUTAMOL] [Concomitant]
     Active Substance: ALBUTEROL
  4. DULOXETINE. [Concomitant]
     Active Substance: DULOXETINE
  5. INSULIN [Concomitant]
     Active Substance: INSULIN NOS
  6. TOCILIZUMAB. [Concomitant]
     Active Substance: TOCILIZUMAB
     Dosage: UNK
     Dates: start: 20200506, end: 20200506
  7. DOCUSATE;SENNA [Concomitant]
  8. ROPINIROLE. [Concomitant]
     Active Substance: ROPINIROLE
  9. ARFORMOTEROL [Concomitant]
     Active Substance: ARFORMOTEROL
  10. FAMOTIDINE. [Concomitant]
     Active Substance: FAMOTIDINE
  11. PROPOFOL. [Concomitant]
     Active Substance: PROPOFOL
  12. ENOXAPARIN [Concomitant]
     Active Substance: ENOXAPARIN
  13. KETAMINE [Concomitant]
     Active Substance: KETAMINE
  14. REMDESIVIR. [Suspect]
     Active Substance: REMDESIVIR
     Indication: COVID-19
     Dosage: 200 MG, ONCE
     Route: 065
     Dates: start: 20200509, end: 20200509
  15. POTASSIUM CHLORIDE. [Concomitant]
     Active Substance: POTASSIUM CHLORIDE
  16. FENTANYL. [Concomitant]
     Active Substance: FENTANYL
  17. MIDAZOLAM. [Concomitant]
     Active Substance: MIDAZOLAM
  18. BUDESONIDE. [Concomitant]
     Active Substance: BUDESONIDE
  19. ROCURONIUM [Concomitant]
     Active Substance: ROCURONIUM BROMIDE
  20. REMDESIVIR. [Suspect]
     Active Substance: REMDESIVIR
     Indication: RESPIRATORY FAILURE
     Dosage: 100 MG, QD
     Route: 065
     Dates: start: 20200513, end: 20200513
  21. LORAZEPAM. [Concomitant]
     Active Substance: LORAZEPAM
  22. DEXMEDETOMIDINE. [Concomitant]
     Active Substance: DEXMEDETOMIDINE

REACTIONS (2)
  - Aspartate aminotransferase increased [Recovered/Resolved]
  - Alanine aminotransferase increased [Recovered/Resolved]

NARRATIVE: CASE EVENT DATE: 20200512
